FAERS Safety Report 7505715-4 (Version None)
Quarter: 2011Q2

REPORT INFORMATION
  Report Type: 
  Country: None (occurrence: None)
  Receive Date: 20110526
  Receipt Date: 20110523
  Transmission Date: 20111010
  Serious: Yes (Other)
  Sender: FDA-Public Use
  Company Number: US-PFIZER INC-2011095822

PATIENT
  Age: 70 Year
  Sex: Female

DRUGS (1)
  1. FELDENE [Suspect]
     Indication: LIMB DISCOMFORT
     Dosage: UNK

REACTIONS (3)
  - FRACTURE [None]
  - EPISTAXIS [None]
  - HEADACHE [None]
